FAERS Safety Report 6574648 (Version 8)
Quarter: 2012Q4

REPORT INFORMATION
  Report Type: 
  Country: US (occurrence: US)
  Receive Date: 20080310
  Receipt Date: 20120926
  Transmission Date: 20130627
  Serious: Yes (Hospitalization, Disabling, Other)
  Sender: FDA-Public Use
  Company Number: US-009507513-0710USA04007

PATIENT

DRUGS (6)
  1. FOSAMAX [Suspect]
     Route: 048
     Dates: start: 1999, end: 2007
  2. FOSAMAX [Suspect]
     Dosage: 70 mg, QW
     Route: 048
     Dates: end: 2007
  3. LIPITOR [Concomitant]
     Indication: BLOOD CHOLESTEROL INCREASED
     Dates: start: 1998
  4. SEROQUEL [Concomitant]
     Dates: start: 1998
  5. METOPROLOL [Concomitant]
     Indication: HYPERTENSION
     Dates: start: 1998, end: 2007
  6. PREMPRO [Concomitant]
     Dates: start: 1997, end: 2002

REACTIONS (28)
  - Osteonecrosis [Unknown]
  - Cellulitis [Unknown]
  - Plasma cell myeloma [Unknown]
  - Suicidal ideation [Unknown]
  - Major depression [Unknown]
  - Parotid abscess [Recovering/Resolving]
  - Pneumonia [Unknown]
  - Ovarian cancer [Unknown]
  - Anaemia of chronic disease [Recovered/Resolved]
  - Osteonecrosis of jaw [Unknown]
  - Arthralgia [Unknown]
  - Breast disorder [Unknown]
  - Spinal column stenosis [Unknown]
  - Hypokalaemia [Unknown]
  - Spinal cord compression [Unknown]
  - Sciatica [Unknown]
  - Lacunar infarction [Unknown]
  - Herpes zoster ophthalmic [Unknown]
  - Parotitis [Unknown]
  - Fatigue [Not Recovered/Not Resolved]
  - Circulatory collapse [Unknown]
  - Pyrexia [Unknown]
  - Spinal disorder [Unknown]
  - Epistaxis [Unknown]
  - Haemorrhage [Unknown]
  - Abdominal pain lower [Unknown]
  - Gastrooesophageal reflux disease [Unknown]
  - Drug hypersensitivity [Unknown]
